FAERS Safety Report 6393974-3 (Version None)
Quarter: 2009Q4

REPORT INFORMATION
  Report Type: 
  Country: None (occurrence: None)
  Receive Date: 20091008
  Receipt Date: 20080926
  Transmission Date: 20100525
  Serious: No
  Sender: FDA-Public Use
  Company Number: US-BRISTOL-MYERS SQUIBB COMPANY-14349054

PATIENT
  Age: 18 Year
  Sex: Male
  Weight: 51 kg

DRUGS (3)
  1. MEGACE [Suspect]
     Indication: INCREASED APPETITE
     Dosage: WEANED OVR A 3WK PERIOD FRM 1-TEASPOON TID,TO 1-TEASPOON BID,TO 1-TEASPOON QD 1 D.F = 1-TEASPOON
     Dates: start: 20080101, end: 20080909
  2. CHEMOTHERAPY [Concomitant]
     Dosage: CHEMOTHERAPY ARA-C
  3. BENADRYL [Concomitant]

REACTIONS (1)
  - PARAESTHESIA [None]
